FAERS Safety Report 4985240-5 (Version None)
Quarter: 2006Q2

REPORT INFORMATION
  Report Type: 
  Country: None (occurrence: None)
  Receive Date: 20060427
  Receipt Date: 20051102
  Transmission Date: 20061013
  Serious: Yes (Death, Hospitalization)
  Sender: FDA-Public Use
  Company Number: US-MERCK-0511USA00619

PATIENT
  Age: 59 Year
  Sex: Male

DRUGS (12)
  1. VIOXX [Suspect]
     Indication: ARTHRALGIA
     Route: 048
     Dates: start: 20030818, end: 20031001
  2. GLUCOTROL [Concomitant]
     Route: 065
  3. TOPROL-XL [Concomitant]
     Route: 065
  4. ASPIRIN [Concomitant]
     Route: 065
  5. GLUCOPHAGE [Concomitant]
     Route: 065
  6. DYAZIDE [Concomitant]
     Route: 065
  7. XANAX [Concomitant]
     Route: 065
     Dates: start: 20031023
  8. ACTOS [Concomitant]
     Route: 065
  9. ACIPHEX [Concomitant]
     Route: 065
  10. UNIRETIC [Concomitant]
     Route: 065
  11. ALEVE [Concomitant]
     Route: 065
  12. IRON (UNSPECIFIED) [Concomitant]
     Route: 065

REACTIONS (5)
  - ARTHROPATHY [None]
  - ATRIOVENTRICULAR BLOCK [None]
  - DYSPEPSIA [None]
  - MYOCARDIAL INFARCTION [None]
  - VENTRICULAR FIBRILLATION [None]
